FAERS Safety Report 8193750-5 (Version None)
Quarter: 2012Q1

REPORT INFORMATION
  Report Type: 
  Country: None (occurrence: None)
  Receive Date: 20120308
  Receipt Date: 20120228
  Transmission Date: 20120608
  Serious: Yes (Hospitalization)
  Sender: FDA-Public Use
  Company Number: US-BRISTOL-MYERS SQUIBB COMPANY-16423246

PATIENT
  Age: 58 Year
  Sex: Male

DRUGS (3)
  1. ZOMETA [Concomitant]
  2. ERBITUX [Suspect]
     Indication: COLON CANCER
  3. LOVENOX [Concomitant]

REACTIONS (5)
  - ATRIAL FIBRILLATION [None]
  - LOSS OF CONSCIOUSNESS [None]
  - URTICARIA [None]
  - NAIL GROWTH ABNORMAL [None]
  - PULMONARY HAEMORRHAGE [None]
